FAERS Safety Report 5463592-X (Version None)
Quarter: 2007Q3

REPORT INFORMATION
  Report Type: 
  Country: None (occurrence: None)
  Receive Date: 20070920
  Receipt Date: 20070911
  Transmission Date: 20080115
  Serious: Yes (Hospitalization)
  Sender: FDA-Public Use
  Company Number: DE-ABBOTT-07P-062-0416756-00

PATIENT
  Sex: Male

DRUGS (7)
  1. HUMIRA [Suspect]
     Indication: PSORIATIC ARTHROPATHY
     Route: 058
     Dates: start: 20061221, end: 20070501
  2. SULFASALAZINE [Concomitant]
     Indication: PSORIATIC ARTHROPATHY
     Route: 048
     Dates: start: 20060101, end: 20070101
  3. SULFASALAZINE [Concomitant]
     Route: 048
     Dates: start: 20070101, end: 20070625
  4. DICLOFENAC [Concomitant]
     Indication: PSORIATIC ARTHROPATHY
     Route: 048
     Dates: start: 20060101
  5. METHOTREXATE [Concomitant]
     Indication: PSORIATIC ARTHROPATHY
     Dates: start: 20060601, end: 20070501
  6. CORTISONE ACETATE TAB [Concomitant]
     Indication: PSORIATIC ARTHROPATHY
     Route: 014
     Dates: start: 20070626, end: 20070629
  7. ESOMEPRAZOLE MAGNESIUM [Concomitant]
     Indication: PROPHYLAXIS AGAINST GASTROINTESTINAL ULCER
     Route: 048
     Dates: start: 20070101

REACTIONS (11)
  - GENERAL PHYSICAL HEALTH DETERIORATION [None]
  - HEPATIC ENZYME INCREASED [None]
  - HEPATOMEGALY [None]
  - HIV INFECTION [None]
  - HUMORAL IMMUNE DEFECT [None]
  - IMMUNOGLOBULINS INCREASED [None]
  - LYMPHADENOPATHY [None]
  - LYMPHOMA [None]
  - PAIN [None]
  - SPLENOMEGALY [None]
  - TYPHOID FEVER [None]
